FAERS Safety Report 5158220-7 (Version None)
Quarter: 2006Q4

REPORT INFORMATION
  Report Type: 
  Country: None (occurrence: None)
  Receive Date: 20061121
  Receipt Date: 20061121
  Transmission Date: 20070319
  Serious: Yes (Other)
  Sender: FDA-Public Use
  Company Number: None

PATIENT
  Sex: Female
  Weight: 91.6266 kg

DRUGS (2)
  1. ZICAM NASAL SWABS [Suspect]
     Indication: NASOPHARYNGITIS
     Dosage: ONE SWAB
     Dates: start: 20061027, end: 20061027
  2. ZICAM [Suspect]
     Dosage: ONE TABLET
     Dates: start: 20061101, end: 20061101

REACTIONS (2)
  - AGEUSIA [None]
  - ANOSMIA [None]
